FAERS Safety Report 14337054 (Version 1)
Quarter: 2017Q4

REPORT INFORMATION
  Report Type: Spontaneous
  Country: US (occurrence: US)
  Receive Date: 20171228
  Receipt Date: 20171228
  Transmission Date: 20180321
  Serious: Yes (Hospitalization, Other)
  Sender: FDA-Public Use
  Company Number: None

PATIENT
  Age: 38 Year
  Sex: Male
  Weight: 123 kg

DRUGS (10)
  1. GABAPENTIN. [Concomitant]
     Active Substance: GABAPENTIN
  2. PAROXETINE. [Concomitant]
     Active Substance: PAROXETINE
  3. DAPTOMYCIN. [Suspect]
     Active Substance: DAPTOMYCIN
     Indication: EXTRADURAL ABSCESS
     Route: 041
     Dates: start: 20171208, end: 20171208
  4. ACETAMINOPHEN - OXYCODONE [Concomitant]
  5. HYDROCORTISONE. [Concomitant]
     Active Substance: HYDROCORTISONE
  6. DAPTOMYCIN. [Suspect]
     Active Substance: DAPTOMYCIN
     Indication: STAPHYLOCOCCAL SEPSIS
     Route: 041
     Dates: start: 20171208, end: 20171208
  7. VANCOMCYIN [Concomitant]
  8. DAPTOMYCIN. [Suspect]
     Active Substance: DAPTOMYCIN
     Indication: STAPHYLOCOCCAL INFECTION
     Route: 041
     Dates: start: 20171208, end: 20171208
  9. PANTOPRAZOLE [Concomitant]
     Active Substance: PANTOPRAZOLE
  10. DAPTOMYCIN. [Suspect]
     Active Substance: DAPTOMYCIN
     Indication: PSOAS ABSCESS
     Route: 041
     Dates: start: 20171208, end: 20171208

REACTIONS (9)
  - Erythema [None]
  - Dermatitis exfoliative [None]
  - Nausea [None]
  - Rash [None]
  - Dyspnoea [None]
  - Pyrexia [None]
  - Skin exfoliation [None]
  - Swelling face [None]
  - Obstructive airways disorder [None]

NARRATIVE: CASE EVENT DATE: 20171208
